FAERS Safety Report 7764439-9 (Version None)
Quarter: 2011Q3

REPORT INFORMATION
  Report Type: 
  Country: None (occurrence: None)
  Receive Date: 20110919
  Receipt Date: 20110906
  Transmission Date: 20111222
  Serious: Yes (Other)
  Sender: FDA-Public Use
  Company Number: 1000023822

PATIENT
  Age: 92 Year
  Sex: Female

DRUGS (4)
  1. SPIRIVA (TIOTROPIUM BROMIDE) (TIOTROPIUM BROMIDE) [Concomitant]
  2. UNSPECIFIC BRONCHODILATOR (BRONCHODILATOR) (INHALANT) (BRONCHODILATOR) [Concomitant]
  3. UNSPECIFIC CORTICOID (CORTICOSTEROID) (CORTICOSTEROID) [Concomitant]
  4. ROFLUMILAST (ROFLUMILAST) (TABLETS) [Suspect]
     Indication: CHRONIC OBSTRUCTIVE PULMONARY DISEASE
     Dosage: 1 DF (1 DOSAGE FORMS,1 IN 1 D),ORAL
     Route: 048
     Dates: start: 20110801, end: 20110801

REACTIONS (4)
  - HYPOTENSION [None]
  - HYPERSENSITIVITY [None]
  - SYNCOPE [None]
  - COMA [None]
